FAERS Safety Report 9417765 (Version 1)
Quarter: 2013Q3

REPORT INFORMATION
  Report Type: Spontaneous
  Country: BR (occurrence: BR)
  Receive Date: 20130724
  Receipt Date: 20130724
  Transmission Date: 20140515
  Serious: Yes (Hospitalization)
  Sender: FDA-Public Use
  Company Number: BR-GLAXOSMITHKLINE-A1034395A

PATIENT
  Age: 81 Year
  Sex: Male
  Weight: 88 kg

DRUGS (3)
  1. COMBODART [Suspect]
     Indication: PROSTATOMEGALY
     Dosage: 1CAP PER DAY
     Route: 048
     Dates: start: 20130514, end: 20130709
  2. AMOXICILLIN + CLAVULANATE POTASSIUM [Concomitant]
     Indication: PRODUCT USED FOR UNKNOWN INDICATION
     Dosage: 1TAB THREE TIMES PER DAY
     Route: 048
     Dates: start: 20130708
  3. PYRIDIUM [Concomitant]
     Indication: PRODUCT USED FOR UNKNOWN INDICATION
     Dosage: 1TAB THREE TIMES PER DAY
     Route: 048
     Dates: start: 20130611, end: 20130709

REACTIONS (6)
  - Syncope [Recovered/Resolved]
  - Hyperhidrosis [Recovering/Resolving]
  - Hypotension [Recovering/Resolving]
  - Drug ineffective [Recovering/Resolving]
  - Dysuria [Unknown]
  - Drug hypersensitivity [Unknown]
